FAERS Safety Report 25059526 (Version 1)
Quarter: 2025Q1

REPORT INFORMATION
  Report Type: Spontaneous
  Country: FR (occurrence: FR)
  Receive Date: 20250310
  Receipt Date: 20250310
  Transmission Date: 20250409
  Serious: Yes (Death, Other)
  Sender: AMGEN
  Company Number: FR-AMGEN-FRASP2025042562

PATIENT

DRUGS (2)
  1. PROLIA [Suspect]
     Active Substance: DENOSUMAB
     Indication: Osteoporosis
     Route: 065
  2. PREDNISONE [Concomitant]
     Active Substance: PREDNISONE

REACTIONS (11)
  - Death [Fatal]
  - Chronic kidney disease [Unknown]
  - Thoracic vertebral fracture [Unknown]
  - Lumbar vertebral fracture [Unknown]
  - Femoral neck fracture [Unknown]
  - Renal failure [Unknown]
  - Ulna fracture [Unknown]
  - Fibula fracture [Unknown]
  - Rib fracture [Unknown]
  - Wrist fracture [Unknown]
  - Humerus fracture [Unknown]
